FAERS Safety Report 7569289-4 (Version None)
Quarter: 2011Q2

REPORT INFORMATION
  Report Type: 
  Country: None (occurrence: None)
  Receive Date: 20110623
  Receipt Date: 20110614
  Transmission Date: 20111010
  Serious: Yes (Other)
  Sender: FDA-Public Use
  Company Number: US-ASTRAZENECA-2011SE36284

PATIENT
  Sex: Male

DRUGS (2)
  1. PLAVIX [Suspect]
     Route: 065
  2. PRILOSEC [Suspect]
     Route: 048

REACTIONS (4)
  - MYOCARDIAL INFARCTION [None]
  - GASTRIC ULCER [None]
  - CARDIAC DISORDER [None]
  - CORONARY ARTERIAL STENT INSERTION [None]
